FAERS Safety Report 8869212 (Version 1)
Quarter: 2012Q4

REPORT INFORMATION
  Report Type: 
  Country: TH (occurrence: TH)
  Receive Date: 20121030
  Receipt Date: 20121030
  Transmission Date: 20130627
  Serious: Yes (Death)
  Sender: FDA-Public Use
  Company Number: TH-BAXTER-2012BAX020720

PATIENT
  Age: 78 Year
  Sex: Female

DRUGS (1)
  1. DIANEAL LOW CALCIUM (2.5 PERCENT MEQ/L) PERITONEAL DIALYSIS SOL WITH 1 [Suspect]
     Indication: AUTOMATED PERITONEAL DIALYSIS
     Route: 033
     Dates: start: 20110706, end: 20121009

REACTIONS (1)
  - Death [Fatal]
